FAERS Safety Report 13985549 (Version 1)
Quarter: 2017Q3

REPORT INFORMATION
  Report Type: Spontaneous
  Country: US (occurrence: US)
  Receive Date: 20170918
  Receipt Date: 20170918
  Transmission Date: 20171128
  Serious: Yes (Disabling)
  Sender: FDA-Public Use
  Company Number: None

PATIENT
  Age: 27 Year
  Sex: Female
  Weight: 51.75 kg

DRUGS (10)
  1. BITTERS EXTRA [Concomitant]
  2. GI BENEFITS [Concomitant]
  3. THER-BIOTIC COMPLETE [Concomitant]
  4. GLUCOSAMINE CHONDROITIN [Concomitant]
     Active Substance: CHONDROITIN SULFATE (BOVINE)\GLUCOSAMINE HYDROCHLORIDE
  5. CIPROFLOXACIN HCL [Suspect]
     Active Substance: CIPROFLOXACIN HYDROCHLORIDE
     Indication: INFECTION
     Dosage: ?          QUANTITY:14 CAPSULE(S);?
     Route: 048
     Dates: start: 20170523, end: 20170524
  6. MULTIVITAMINS [Concomitant]
     Active Substance: VITAMINS
  7. 20 BILLION STRAIN PROBIOTIC [Concomitant]
  8. COLLAGEN HYDROLYSATE [Concomitant]
  9. LIPTROPIC COMPLEX [Concomitant]
  10. NUX VOMICA 30C [Concomitant]

REACTIONS (22)
  - Tendon disorder [None]
  - Hypersensitivity [None]
  - Abdominal discomfort [None]
  - Food intolerance [None]
  - Paraesthesia [None]
  - Myalgia [None]
  - Arthralgia [None]
  - Neuropathy peripheral [None]
  - Abnormal behaviour [None]
  - Discomfort [None]
  - Diarrhoea [None]
  - Tendon pain [None]
  - Nausea [None]
  - Pain [None]
  - Muscular weakness [None]
  - Mood altered [None]
  - Constipation [None]
  - Burning sensation [None]
  - Gait inability [None]
  - Impaired driving ability [None]
  - Neurotoxicity [None]
  - Depression [None]

NARRATIVE: CASE EVENT DATE: 20170524
